FAERS Safety Report 4328564-7 (Version None)
Quarter: 2004Q1

REPORT INFORMATION
  Report Type: 
  Country: None (occurrence: None)
  Receive Date: 20040319
  Receipt Date: 20031230
  Transmission Date: 20041129
  Serious: No
  Sender: FDA-Public Use
  Company Number: US-JNJFOC-20040100214

PATIENT
  Age: 20 Year
  Sex: Female
  Weight: 46.2669 kg

DRUGS (3)
  1. ORTHO EVRA [Suspect]
     Indication: CONTRACEPTION
     Dosage: 1 DOSE (S), 3 IN 4 WEEK, TRANSDERMAL
     Route: 062
     Dates: start: 20021201
  2. FEROFOLIC (FERRO-FOLSAN) [Concomitant]
  3. APPETITE STIMULANT (APPETITE STIMULANTS) [Concomitant]

REACTIONS (3)
  - APPLICATION SITE REACTION [None]
  - EYE INFECTION [None]
  - SKIN HYPERPIGMENTATION [None]
